FAERS Safety Report 5759482-5 (Version None)
Quarter: 2008Q2

REPORT INFORMATION
  Report Type: 
  Country: None (occurrence: None)
  Receive Date: 20080605
  Receipt Date: 20080502
  Transmission Date: 20081010
  Serious: No
  Sender: FDA-Public Use
  Company Number: US-BAYER-200815368NA

PATIENT
  Sex: Female

DRUGS (2)
  1. ANGELIQ [Suspect]
     Indication: DRUG USE FOR UNKNOWN INDICATION
     Route: 048
     Dates: start: 20071201
  2. ANTIHISTAMINES [Concomitant]
     Indication: DRUG USE FOR UNKNOWN INDICATION

REACTIONS (3)
  - PHOTOPSIA [None]
  - VISION BLURRED [None]
  - VISUAL DISTURBANCE [None]
